FAERS Safety Report 13898718 (Version 1)
Quarter: 2017Q3

REPORT INFORMATION
  Report Type: Spontaneous
  Country: US (occurrence: None)
  Receive Date: 20170817
  Receipt Date: 20170817
  Transmission Date: 20171127
  Serious: Yes (Hospitalization)
  Sender: FDA-Public Use
  Company Number: None

PATIENT
  Age: 71 Year
  Sex: Male
  Weight: 58.06 kg

DRUGS (2)
  1. CLOPIDOGREL [Suspect]
     Active Substance: CLOPIDOGREL BISULFATE
     Indication: ANTITHROMBIN III DEFICIENCY
     Route: 048
     Dates: start: 20160810, end: 20170619
  2. ASPIRIN. [Suspect]
     Active Substance: ASPIRIN
     Indication: ANTITHROMBIN III DEFICIENCY
     Route: 048
     Dates: start: 20170531, end: 20170619

REACTIONS (4)
  - Haemorrhage intracranial [None]
  - Fall [None]
  - Head injury [None]
  - Limb injury [None]

NARRATIVE: CASE EVENT DATE: 20170619
